FAERS Safety Report 8911965 (Version 2)
Quarter: 2012Q4

REPORT INFORMATION
  Report Type: 
  Country: TW (occurrence: TW)
  Receive Date: 20121115
  Receipt Date: 20121128
  Transmission Date: 20130627
  Serious: Yes (Death)
  Sender: FDA-Public Use
  Company Number: TW-BAXTER-2012BAX023373

PATIENT

DRUGS (8)
  1. DIANEAL LOW CALCIUM (2.5 MEQ/L) PD SOLUTION WITH 1.5% DEXTROSE ^BAXTER [Suspect]
     Indication: AUTOMATED PERITONEAL DIALYSIS
     Route: 033
  2. DIANEAL LOW CALCIUM (2.5 MEQ/L) PD SOLUTION WITH 1.5% DEXTROSE ^BAXTER [Suspect]
     Indication: CONTINUOUS AMBULATORY PERITONEAL DIALYSIS
  3. DIANEAL LOW CALCIUM (2.5 MEQ/L) PD SOLUTION WITH 2.5% DEXTROSE ^BAXTER [Suspect]
     Indication: AUTOMATED PERITONEAL DIALYSIS
     Route: 033
  4. DIANEAL LOW CALCIUM (2.5 MEQ/L) PD SOLUTION WITH 2.5% DEXTROSE ^BAXTER [Suspect]
     Indication: CONTINUOUS AMBULATORY PERITONEAL DIALYSIS
  5. BAXTER EXTRANEAL PERITONEAL DIALYSIS SOLUTION WITH 7.5% ICODEXTRIN [Suspect]
     Indication: AUTOMATED PERITONEAL DIALYSIS
     Route: 033
  6. BAXTER EXTRANEAL PERITONEAL DIALYSIS SOLUTION WITH 7.5% ICODEXTRIN [Suspect]
     Indication: CONTINUOUS AMBULATORY PERITONEAL DIALYSIS
  7. NUTRINEAL PD4 WITH 1.1% AMINO ACID SOLUTION [Suspect]
     Indication: AUTOMATED PERITONEAL DIALYSIS
     Route: 033
  8. NUTRINEAL PD4 WITH 1.1% AMINO ACID SOLUTION [Suspect]
     Indication: CONTINUOUS AMBULATORY PERITONEAL DIALYSIS

REACTIONS (1)
  - Cardiovascular disorder [Fatal]
